FAERS Safety Report 24878700 (Version 1)
Quarter: 2025Q1

REPORT INFORMATION
  Report Type: Spontaneous
  Country: US (occurrence: US)
  Receive Date: 20250123
  Receipt Date: 20250123
  Transmission Date: 20250409
  Serious: No
  Sender: AMGEN
  Company Number: US-AMGEN-USASP2025012881

PATIENT

DRUGS (5)
  1. PREDNISONE [Suspect]
     Active Substance: PREDNISONE
     Indication: Kawasaki^s disease
     Dosage: 2 MILLIGRAM/KILOGRAM, QD
     Route: 048
  2. PREDNISONE [Suspect]
     Active Substance: PREDNISONE
     Dosage: 1 MILLIGRAM/KILOGRAM, QD, 5 DAYS
     Route: 048
  3. PREDNISONE [Suspect]
     Active Substance: PREDNISONE
     Dosage: 0.5 MILLIGRAM/KILOGRAM, QD, 5 DAYS
     Route: 048
  4. HUMAN IMMUNOGLOBULIN G [Concomitant]
     Active Substance: HUMAN IMMUNOGLOBULIN G
     Indication: Kawasaki^s disease
     Route: 040
  5. ASPIRIN [Concomitant]
     Active Substance: ASPIRIN
     Indication: Kawasaki^s disease

REACTIONS (2)
  - Treatment failure [Unknown]
  - Off label use [Unknown]
